FAERS Safety Report 11709386 (Version 1)
Quarter: 2015Q4

REPORT INFORMATION
  Report Type: Spontaneous
  Country: US (occurrence: US)
  Receive Date: 20151104
  Receipt Date: 20151104
  Transmission Date: 20160304
  Serious: No
  Sender: FDA-Public Use
  Company Number: US-ELI_LILLY_AND_COMPANY-US201102006447

PATIENT
  Age: 76 Year
  Sex: Female

DRUGS (6)
  1. FORTEO [Suspect]
     Active Substance: TERIPARATIDE
     Dosage: 20 UG, QD
  2. FORTEO [Suspect]
     Active Substance: TERIPARATIDE
     Indication: OSTEOPOROSIS
     Dosage: 20UG, DAILY (1/D)
     Route: 065
     Dates: start: 20110217, end: 20110415
  3. FORTEO [Suspect]
     Active Substance: TERIPARATIDE
     Dosage: 20 UG, QD
  4. FORTEO [Suspect]
     Active Substance: TERIPARATIDE
     Dosage: 20 UG, QD
     Dates: start: 20110501
  5. FORTEO [Suspect]
     Active Substance: TERIPARATIDE
     Dosage: 20 UG, QD
  6. FORTEO [Suspect]
     Active Substance: TERIPARATIDE
     Dosage: 20 UG, QD
     Route: 065

REACTIONS (14)
  - Food allergy [Unknown]
  - Sciatica [Not Recovered/Not Resolved]
  - Scratch [Unknown]
  - Fall [Unknown]
  - Carpal tunnel syndrome [Unknown]
  - Nasal discomfort [Unknown]
  - Rash pruritic [Recovering/Resolving]
  - Contusion [Unknown]
  - Nausea [Unknown]
  - Fatigue [Unknown]
  - Face injury [Unknown]
  - Epistaxis [Unknown]
  - Injection site erythema [Recovered/Resolved]
  - Peripheral swelling [Unknown]

NARRATIVE: CASE EVENT DATE: 2011
